FAERS Safety Report 5679552-X (Version None)
Quarter: 2008Q1

REPORT INFORMATION
  Report Type: 
  Country: None (occurrence: None)
  Receive Date: 20080325
  Receipt Date: 20080313
  Transmission Date: 20080703
  Serious: Yes (Other)
  Sender: FDA-Public Use
  Company Number: US-PFIZER INC-2008024193

PATIENT
  Sex: Female

DRUGS (5)
  1. LYRICA [Suspect]
  2. ZYVOX [Concomitant]
  3. METRONIDAZOLE HCL [Concomitant]
  4. PREDNISOLONE [Concomitant]
  5. VICODIN [Concomitant]

REACTIONS (1)
  - DRUG SCREEN FALSE POSITIVE [None]
